FAERS Safety Report 8067491-9 (Version None)
Quarter: 2012Q1

REPORT INFORMATION
  Report Type: 
  Country: None (occurrence: None)
  Receive Date: 20120124
  Receipt Date: 20120118
  Transmission Date: 20120608
  Serious: Yes (Hospitalization)
  Sender: FDA-Public Use
  Company Number: FR-PFIZER INC-2012004098

PATIENT
  Sex: Male

DRUGS (8)
  1. NASONEX [Concomitant]
     Dosage: UNK
     Dates: start: 20110101
  2. ATORVASTATIN CALCIUM [Suspect]
     Indication: HYPERCHOLESTEROLAEMIA
     Dosage: UNK
     Route: 048
  3. VALPROIC ACID [Suspect]
     Indication: BIPOLAR I DISORDER
     Dosage: 300 MG, THREE TIMES DAILY
     Route: 048
  4. TEGRETOL [Suspect]
     Indication: BIPOLAR I DISORDER
     Dosage: 2 DF, ONCE DAILY
     Route: 048
  5. ESOMEPRAZOLE [Suspect]
     Dosage: UNK
     Route: 048
  6. LANTUS [Suspect]
     Indication: TYPE 1 DIABETES MELLITUS
     Dosage: UNK
     Route: 058
     Dates: start: 20070101
  7. NOCTAMID [Suspect]
     Indication: BIPOLAR I DISORDER
     Dosage: UNK
     Route: 048
     Dates: start: 20090101, end: 20111101
  8. SINGULAIR [Concomitant]
     Dosage: UNK

REACTIONS (1)
  - ASTHMA [None]
